FAERS Safety Report 7677979-8 (Version None)
Quarter: 2011Q3

REPORT INFORMATION
  Report Type: 
  Country: None (occurrence: None)
  Receive Date: 20110811
  Receipt Date: 20110804
  Transmission Date: 20111222
  Serious: Yes (Other)
  Sender: FDA-Public Use
  Company Number: US-VIIV HEALTHCARE LIMITED-A0928344A

PATIENT
  Age: 50 Year
  Sex: Male

DRUGS (14)
  1. ASPIRIN [Concomitant]
  2. DIOVAN [Concomitant]
  3. VITAMIN D [Concomitant]
  4. PRAVASTATIN [Concomitant]
  5. INDOMETHACIN [Concomitant]
  6. VIRACEPT [Suspect]
     Indication: PRODUCT USED FOR UNKNOWN INDICATION
  7. ZOLPIDEM [Concomitant]
  8. NEXIUM [Concomitant]
  9. DILTIAZEM [Concomitant]
  10. HYDROCODONE [Concomitant]
  11. AMITRIPTYLINE HCL [Concomitant]
  12. TAMSULOSIN HCL [Concomitant]
  13. COMBIVIR [Suspect]
     Indication: HIV INFECTION
     Dosage: 1TAB TWICE PER DAY
     Route: 048
     Dates: start: 19991101
  14. VITAMIN AND MINERAL PRENATAL SUPPLEMENT W/ FOLIC ACID CAP [Concomitant]

REACTIONS (2)
  - HEPATIC ENZYME INCREASED [None]
  - GASTROOESOPHAGEAL REFLUX DISEASE [None]
